FAERS Safety Report 10146348 (Version 1)
Quarter: 2014Q2

REPORT INFORMATION
  Report Type: Report from Study
  Country: IN (occurrence: IN)
  Receive Date: 20140501
  Receipt Date: 20140501
  Transmission Date: 20141212
  Serious: Yes (Death, Other)
  Sender: FDA-Public Use
  Company Number: IN-SA-2014SA055792

PATIENT
  Sex: Male

DRUGS (5)
  1. RIFAMPICIN [Suspect]
     Indication: TUBERCULOSIS
     Route: 065
     Dates: start: 20110830
  2. PYRAZINAMIDE [Suspect]
     Indication: TUBERCULOSIS
     Route: 065
     Dates: start: 20110830
  3. ISONIAZID [Suspect]
     Indication: TUBERCULOSIS
     Route: 065
     Dates: start: 20110830
  4. ETHAMBUTOL [Suspect]
     Indication: TUBERCULOSIS
     Route: 065
     Dates: start: 20110830
  5. PLACEBO [Suspect]
     Indication: TUBERCULOSIS
     Route: 065
     Dates: start: 20110830

REACTIONS (4)
  - Altered state of consciousness [Fatal]
  - Abnormal behaviour [Fatal]
  - Loss of consciousness [Fatal]
  - Convulsion [Unknown]
